FAERS Safety Report 9595776 (Version 1)
Quarter: 2013Q4

REPORT INFORMATION
  Report Type: Spontaneous
  Country: US (occurrence: US)
  Receive Date: 20131004
  Receipt Date: 20131004
  Transmission Date: 20140711
  Serious: No
  Sender: FDA-Public Use
  Company Number: US-PURDUE-USA-2012-0092266

PATIENT
  Age: 27 Year
  Sex: Male

DRUGS (4)
  1. BUTRANS [Suspect]
     Indication: COMPLEX REGIONAL PAIN SYNDROME
     Dosage: 10 MCG/HR, UNK
     Route: 062
  2. CYMBALTA [Concomitant]
     Indication: MYALGIA
     Dosage: 60 MG, BID
  3. NEURONTIN [Concomitant]
     Indication: MYALGIA
     Dosage: 400 MG, 5 TIMES A DAY
  4. LUNESTA [Concomitant]
     Indication: INSOMNIA
     Dosage: 2 MG, QD PRN

REACTIONS (6)
  - Application site discolouration [Not Recovered/Not Resolved]
  - Wrong technique in drug usage process [Not Recovered/Not Resolved]
  - Drug tolerance [Unknown]
  - Application site rash [Not Recovered/Not Resolved]
  - Application site vesicles [Not Recovered/Not Resolved]
  - Product quality issue [Not Recovered/Not Resolved]
